FAERS Safety Report 19065444 (Version 2)
Quarter: 2021Q2

REPORT INFORMATION
  Report Type: Report from Study
  Country: None (occurrence: US)
  Receive Date: 20210327
  Receipt Date: 20210426
  Transmission Date: 20210717
  Serious: Yes (Other)
  Sender: FDA-Public Use
  Company Number: US-ABBVIE-21K-163-3827836-00

PATIENT
  Sex: Female

DRUGS (1)
  1. HUMIRA [Suspect]
     Active Substance: ADALIMUMAB
     Indication: RHEUMATOID ARTHRITIS
     Dosage: CITRATE FREE
     Route: 058

REACTIONS (10)
  - Rhinitis [Not Recovered/Not Resolved]
  - Joint swelling [Unknown]
  - Weight decreased [Unknown]
  - Inflammation [Recovering/Resolving]
  - Adverse food reaction [Unknown]
  - Hepatic steatosis [Unknown]
  - Nasal polyps [Unknown]
  - Joint range of motion decreased [Unknown]
  - Weight abnormal [Unknown]
  - Swelling [Unknown]
